FAERS Safety Report 4868577-X (Version None)
Quarter: 2005Q4

REPORT INFORMATION
  Report Type: 
  Country: None (occurrence: None)
  Receive Date: 20051223
  Receipt Date: 20051214
  Transmission Date: 20060501
  Serious: Yes (Hospitalization)
  Sender: FDA-Public Use
  Company Number: 2005169699

PATIENT
  Age: 79 Year
  Sex: Male

DRUGS (7)
  1. LIPITOR [Suspect]
     Indication: CORONARY ARTERY DISEASE
     Dosage: 10 MG (10 MG, 1 IN 1 D), ORAL
     Route: 048
     Dates: start: 20021002, end: 20030601
  2. CARVEDILOL [Suspect]
     Indication: ANGINA PECTORIS
     Dosage: 25 MG (12.5 MG, TWICE DAILY), ORAL
     Route: 048
     Dates: start: 20021002, end: 20040913
  3. CARVEDILOL [Suspect]
     Indication: HYPERTENSION
     Dosage: 25 MG (12.5 MG, TWICE DAILY), ORAL
     Route: 048
     Dates: start: 20021002, end: 20040913
  4. MONOKET OD                         (ISOSORBIDE MONONITRATE) [Suspect]
     Indication: ANGINA PECTORIS
     Dosage: 50 MG (50 MG, 1 IN 1 D), ORAL
     Route: 048
     Dates: start: 20041013, end: 20050101
  5. ALBYL-E                            (ACETYLSALICYLIC ACID, MAGNESIUM OX [Concomitant]
  6. COZAAR [Concomitant]
  7. NITROGLYCERIN [Concomitant]

REACTIONS (17)
  - ABDOMINAL HERNIA [None]
  - ASCITES [None]
  - BLOOD ALBUMIN DECREASED [None]
  - BLOOD BILIRUBIN INCREASED [None]
  - CRYPTOGENIC CIRRHOSIS [None]
  - GENERAL PHYSICAL CONDITION ABNORMAL [None]
  - HAEMORRHOIDS [None]
  - HEPATOCELLULAR DAMAGE [None]
  - INGUINAL HERNIA [None]
  - INTERNATIONAL NORMALISED RATIO INCREASED [None]
  - LIPASE DECREASED [None]
  - MALABSORPTION [None]
  - NAUSEA [None]
  - PANCREATIC ATROPHY [None]
  - TRANSAMINASES INCREASED [None]
  - VOMITING [None]
  - WEIGHT DECREASED [None]
